FAERS Safety Report 4673279-9 (Version None)
Quarter: 2005Q2

REPORT INFORMATION
  Report Type: 
  Country: None (occurrence: None)
  Receive Date: 20050524
  Receipt Date: 20050524
  Transmission Date: 20051028
  Serious: Yes (Life-Threatening, Hospitalization)
  Sender: FDA-Public Use
  Company Number: None

PATIENT
  Age: 45 Year
  Sex: Female
  Weight: 80.5 kg

DRUGS (7)
  1. THYMOGLOBULIN [Suspect]
     Indication: PANCREAS TRANSPLANT
     Dates: start: 20050505, end: 20050512
  2. TACROLIMUS [Concomitant]
  3. MYCOPHENOLATE [Concomitant]
  4. PREDNISONE TAB [Concomitant]
  5. VALGANCYCLOVIR [Concomitant]
  6. PANTOPRAZOLE [Concomitant]
  7. HEPARIN [Concomitant]

REACTIONS (4)
  - CREPITATIONS [None]
  - HEART RATE INCREASED [None]
  - OXYGEN SATURATION DECREASED [None]
  - RESPIRATORY RATE INCREASED [None]
